FAERS Safety Report 15886549 (Version 2)
Quarter: 2019Q2

REPORT INFORMATION
  Report Type: Report from Study
  Country: US (occurrence: US)
  Receive Date: 20190129
  Receipt Date: 20190523
  Transmission Date: 20190711
  Serious: Yes (Hospitalization)
  Sender: FDA-Public Use
  Company Number: US-ACTELION-A-NJ2018-179449

PATIENT
  Sex: Male
  Weight: 86.62 kg

DRUGS (7)
  1. VELETRI [Suspect]
     Active Substance: EPOPROSTENOL
     Indication: PULMONARY ARTERIAL HYPERTENSION
     Dosage: 25.20 NG/KG, PER MIN
     Route: 042
  2. SILDENAFIL CITRATE. [Concomitant]
     Active Substance: SILDENAFIL CITRATE
  3. TADALAFIL. [Concomitant]
     Active Substance: TADALAFIL
  4. ELIQUIS [Concomitant]
     Active Substance: APIXABAN
  5. VELETRI [Suspect]
     Active Substance: EPOPROSTENOL
     Dosage: 30.47 NG/KG, PER MIN
     Route: 042
  6. VELETRI [Suspect]
     Active Substance: EPOPROSTENOL
     Dosage: 20.83 NG/KG, PER MIN
     Route: 042
  7. VELETRI [Suspect]
     Active Substance: EPOPROSTENOL
     Dosage: 12.99 NG/KG, PER MIN
     Route: 042

REACTIONS (27)
  - Dyspnoea [Unknown]
  - Oedema peripheral [Unknown]
  - Supraventricular tachycardia [Unknown]
  - Device malfunction [Unknown]
  - Flushing [Unknown]
  - Oedema [Unknown]
  - Cardiac ablation [Unknown]
  - Hypersomnia [Recovering/Resolving]
  - Feeling abnormal [Unknown]
  - Pain in extremity [Unknown]
  - Malaise [Unknown]
  - Dyspnoea exertional [Not Recovered/Not Resolved]
  - Gout [Unknown]
  - Eye movement disorder [Recovered/Resolved]
  - Headache [Unknown]
  - Fatigue [Unknown]
  - Fluid retention [Unknown]
  - Skin erosion [Unknown]
  - Skin burning sensation [Unknown]
  - Unresponsive to stimuli [Recovered/Resolved]
  - Decreased appetite [Unknown]
  - Ingrown hair [Unknown]
  - Blister [Unknown]
  - Pain in jaw [Unknown]
  - Rash erythematous [Unknown]
  - Erythema [Unknown]
  - Abdominal discomfort [Unknown]
